FAERS Safety Report 5887120-X (Version None)
Quarter: 2008Q3

REPORT INFORMATION
  Report Type: 
  Country: None (occurrence: None)
  Receive Date: 20080917
  Receipt Date: 20080905
  Transmission Date: 20090109
  Serious: Yes (Other)
  Sender: FDA-Public Use
  Company Number: LU-PFIZER INC-2008074879

PATIENT
  Age: 10 Year
  Sex: Female

DRUGS (6)
  1. DIFLUCAN [Suspect]
     Indication: MENINGITIS FUNGAL
     Route: 048
     Dates: start: 20080725, end: 20080805
  2. DIFLUCAN [Suspect]
     Route: 042
     Dates: start: 20080805, end: 20080806
  3. DIFLUCAN [Suspect]
     Dosage: DAILY DOSE:500MG
     Route: 048
     Dates: start: 20080807, end: 20080825
  4. LAMICTAL [Concomitant]
  5. TOPAMAX [Concomitant]
  6. MEDROL [Concomitant]

REACTIONS (4)
  - DRUG TOXICITY [None]
  - HEADACHE [None]
  - SKIN OEDEMA [None]
  - VERTIGO [None]
